FAERS Safety Report 16055745 (Version 1)
Quarter: 2019Q1

REPORT INFORMATION
  Report Type: Spontaneous
  Country: FR (occurrence: FR)
  Receive Date: 20190311
  Receipt Date: 20190311
  Transmission Date: 20190418
  Serious: Yes (Hospitalization)
  Sender: FDA-Public Use
  Company Number: FR-ACCORD-111833

PATIENT
  Age: 80 Year
  Sex: Male

DRUGS (5)
  1. RIVOTRIL [Suspect]
     Active Substance: CLONAZEPAM
     Indication: POLYNEUROPATHY
     Route: 048
     Dates: start: 20091029, end: 20091030
  2. TRAMADOL/TRAMADOL HYDROCHLORIDE [Suspect]
     Active Substance: TRAMADOL HYDROCHLORIDE
     Indication: POLYNEUROPATHY
     Route: 048
     Dates: start: 20091014, end: 20091030
  3. EFFERALGAN [Suspect]
     Active Substance: ACETAMINOPHEN
     Indication: POLYNEUROPATHY
     Dosage: STRENGTH : 1 G
     Route: 048
     Dates: start: 20091029
  4. FUROSEMIDE. [Suspect]
     Active Substance: FUROSEMIDE
     Indication: HYPERTENSION
     Route: 048
     Dates: start: 20091029, end: 20091030
  5. LYRICA [Suspect]
     Active Substance: PREGABALIN
     Indication: POLYNEUROPATHY
     Dosage: STRENGTH : 200 MG
     Route: 048
     Dates: start: 20091014

REACTIONS (1)
  - Coma [Recovered/Resolved]

NARRATIVE: CASE EVENT DATE: 20091030
